FAERS Safety Report 17491397 (Version 2)
Quarter: 2020Q2

REPORT INFORMATION
  Report Type: Spontaneous
  Country: US (occurrence: US)
  Receive Date: 20200303
  Receipt Date: 20200415
  Transmission Date: 20200713
  Serious: No
  Sender: FDA-Public Use
  Company Number: US-SA-2020SA055004

PATIENT
  Age: 25 Year
  Sex: Female
  Weight: 61.22 kg

DRUGS (1)
  1. DUPIXENT [Suspect]
     Active Substance: DUPILUMAB
     Indication: DERMATITIS ATOPIC
     Dosage: 300 MG, QOW
     Route: 058
     Dates: start: 20200204

REACTIONS (6)
  - Lacrimation increased [Unknown]
  - Crying [Unknown]
  - Eye pruritus [Unknown]
  - Conjunctivitis [Unknown]
  - Swelling of eyelid [Not Recovered/Not Resolved]
  - Ocular hyperaemia [Unknown]

NARRATIVE: CASE EVENT DATE: 2019
